FAERS Safety Report 18479374 (Version 1)
Quarter: 2020Q4

REPORT INFORMATION
  Report Type: Spontaneous
  Country: US (occurrence: US)
  Receive Date: 20201109
  Receipt Date: 20201109
  Transmission Date: 20210114
  Serious: Yes (Life-Threatening, Hospitalization, Congenital Anomaly, Other)
  Sender: FDA-Public Use
  Company Number: US-STRIDES ARCOLAB LIMITED-2020SP013427

PATIENT
  Age: 1 Day
  Sex: Male
  Weight: 1.61 kg

DRUGS (1)
  1. ACETAZOLAMIDE. [Suspect]
     Active Substance: ACETAZOLAMIDE
     Indication: PRODUCT USED FOR UNKNOWN INDICATION
     Dosage: UNK
     Route: 064

REACTIONS (13)
  - Hypochloraemia [Recovered/Resolved]
  - Gait disturbance [Unknown]
  - Tachypnoea [Recovered/Resolved]
  - Respiratory distress [Recovered/Resolved]
  - Foetal exposure during pregnancy [Unknown]
  - Hypotonia [Unknown]
  - Metabolic acidosis [Recovered/Resolved]
  - Cyanosis [Unknown]
  - Tachycardia foetal [Recovered/Resolved]
  - Use of accessory respiratory muscles [Recovered/Resolved]
  - Congenital emphysema [Unknown]
  - Decreased activity [Unknown]
  - Neonatal disorder [Unknown]
